FAERS Safety Report 8799477 (Version 1)
Quarter: 2012Q4

REPORT INFORMATION
  Report Type: Spontaneous
  Country: DK (occurrence: None)
  Receive Date: 20120914
  Receipt Date: 20120914
  Transmission Date: 20130627
  Serious: Yes (Other)
  Sender: FDA-Public Use
  Company Number: 2012MA011022

PATIENT
  Age: 57 Year
  Sex: Female

DRUGS (2)
  1. INDAPAMIDE [Suspect]
     Indication: HYPERTENSION
     Route: 048
     Dates: start: 20120713, end: 20120721
  2. DICLOFENAC [Concomitant]

REACTIONS (1)
  - Skin exfoliation [None]
